FAERS Safety Report 8886088 (Version 1)
Quarter: 2012Q4

REPORT INFORMATION
  Report Type: 
  Country: US (occurrence: US)
  Receive Date: 20121105
  Receipt Date: 20121105
  Transmission Date: 20130627
  Serious: No
  Sender: FDA-Public Use
  Company Number: US-TEVA-367332USA

PATIENT
  Age: 14 Year
  Sex: Female

DRUGS (1)
  1. QVAR [Suspect]
     Indication: ASTHMA
     Dosage: 160 Microgram Daily; 2 Puffs

REACTIONS (1)
  - Menorrhagia [Unknown]
